FAERS Safety Report 18276965 (Version 1)
Quarter: 2020Q3

REPORT INFORMATION
  Report Type: Spontaneous
  Country: DE (occurrence: DE)
  Receive Date: 20200917
  Receipt Date: 20200917
  Transmission Date: 20201103
  Serious: Yes (Other)
  Sender: FDA-Public Use
  Company Number: DE-009507513-2009DEU005276

PATIENT
  Age: 51 Year
  Sex: Female

DRUGS (3)
  1. PEMBROLIZUMAB. [Suspect]
     Active Substance: PEMBROLIZUMAB
     Indication: MALIGNANT MELANOMA STAGE III
  2. CEFUROXIME. [Concomitant]
     Active Substance: CEFUROXIME
     Route: 042
  3. PEMBROLIZUMAB. [Suspect]
     Active Substance: PEMBROLIZUMAB
     Indication: METASTATIC MALIGNANT MELANOMA
     Dosage: 400 MILLIGRAM, EVERY 6 WEEKS

REACTIONS (13)
  - Haematuria [Unknown]
  - Chills [Unknown]
  - Arthralgia [Unknown]
  - Acute febrile neutrophilic dermatosis [Recovering/Resolving]
  - Proteinuria [Unknown]
  - Diarrhoea [Unknown]
  - Gamma-glutamyltransferase increased [Unknown]
  - Blood creatinine increased [Unknown]
  - Vomiting [Unknown]
  - Blood alkaline phosphatase increased [Unknown]
  - Fatigue [Unknown]
  - General physical health deterioration [Unknown]
  - Lymphopenia [Unknown]

NARRATIVE: CASE EVENT DATE: 201212
